FAERS Safety Report 11217531 (Version 1)
Quarter: 2015Q2

REPORT INFORMATION
  Report Type: Spontaneous
  Country: US (occurrence: US)
  Receive Date: 20150625
  Receipt Date: 20150625
  Transmission Date: 20150821
  Serious: Yes (Death, Hospitalization, Other)
  Sender: FDA-Public Use
  Company Number: PHHY2015US074160

PATIENT
  Age: 26 Year
  Sex: Male

DRUGS (2)
  1. LOPERAMIDE [Suspect]
     Active Substance: LOPERAMIDE
     Indication: PRODUCT USED FOR UNKNOWN INDICATION
     Dosage: 2 MG 100 CAPSULES, BID
     Route: 048
  2. LOPERAMIDE [Suspect]
     Active Substance: LOPERAMIDE
     Dosage: 2 MG 200 CAPSULES, BID
     Route: 048

REACTIONS (13)
  - Tremor [Unknown]
  - Suicide attempt [Fatal]
  - Death [Fatal]
  - Drug abuse [Unknown]
  - Lacrimation increased [Unknown]
  - Cardiac arrest [Fatal]
  - Anxiety [Unknown]
  - Vomiting [Unknown]
  - Yawning [Unknown]
  - Drug withdrawal syndrome [Unknown]
  - Hyperhidrosis [Unknown]
  - Diarrhoea [Unknown]
  - Overdose [Fatal]
